FAERS Safety Report 18690905 (Version 16)
Quarter: 2025Q1

REPORT INFORMATION
  Report Type: Report from Study
  Country: US (occurrence: US)
  Receive Date: 20210101
  Receipt Date: 20250326
  Transmission Date: 20250408
  Serious: Yes (Hospitalization, Other)
  Sender: TAKEDA
  Company Number: US-TAKEDA-US202004681

PATIENT
  Age: 54 Year
  Sex: Female
  Weight: 104 kg

DRUGS (38)
  1. HUMAN IMMUNOGLOBULIN G [Suspect]
     Active Substance: HUMAN IMMUNOGLOBULIN G
     Indication: Primary immunodeficiency syndrome
  2. HUMAN IMMUNOGLOBULIN G [Suspect]
     Active Substance: HUMAN IMMUNOGLOBULIN G
     Indication: Immunodeficiency common variable
     Dosage: 50 GRAM, Q4WEEKS
     Dates: start: 20161206
  3. HUMAN IMMUNOGLOBULIN G [Suspect]
     Active Substance: HUMAN IMMUNOGLOBULIN G
     Indication: Hypogammaglobulinaemia
  4. HUMAN IMMUNOGLOBULIN G [Suspect]
     Active Substance: HUMAN IMMUNOGLOBULIN G
     Indication: Bruton^s agammaglobulinaemia
     Dosage: 50 GRAM, Q4WEEKS
  5. ACETAMINOPHEN [Concomitant]
     Active Substance: ACETAMINOPHEN
  6. DIPHENHYDRAMINE [Concomitant]
     Active Substance: DIPHENHYDRAMINE
  7. LIDOCAINE [Concomitant]
     Active Substance: LIDOCAINE
  8. SALINE [Concomitant]
     Active Substance: SODIUM CHLORIDE
  9. SODIUM CHLORIDE [Concomitant]
     Active Substance: SODIUM CHLORIDE
  10. PREDNISONE [Concomitant]
     Active Substance: PREDNISONE
  11. EPINEPHRINE [Concomitant]
     Active Substance: EPINEPHRINE
  12. BENZONATATE [Concomitant]
     Active Substance: BENZONATATE
  13. OMEPRAZOLE [Concomitant]
     Active Substance: OMEPRAZOLE
  14. Amlodipine besylate;Benazepril [Concomitant]
  15. ZITHROMAX [Concomitant]
     Active Substance: AZITHROMYCIN DIHYDRATE
  16. CELECOXIB [Concomitant]
     Active Substance: CELECOXIB
  17. ALBUTEROL [Concomitant]
     Active Substance: ALBUTEROL
  18. BIOTENE NOS [Concomitant]
     Active Substance: UNSPECIFIED INGREDIENT
  19. BREO ELLIPTA [Concomitant]
     Active Substance: FLUTICASONE FUROATE\VILANTEROL TRIFENATATE
  20. SINGULAIR [Concomitant]
     Active Substance: MONTELUKAST SODIUM
  21. LYRICA [Concomitant]
     Active Substance: PREGABALIN
  22. CRESTOR [Concomitant]
     Active Substance: ROSUVASTATIN CALCIUM
  23. CALCIPOTRIENE [Concomitant]
     Active Substance: CALCIPOTRIENE
  24. CELEBREX [Concomitant]
     Active Substance: CELECOXIB
  25. TOPIRAMATE [Concomitant]
     Active Substance: TOPIRAMATE
  26. TYLENOL [Concomitant]
     Active Substance: ACETAMINOPHEN
  27. FLUCONAZOLE [Concomitant]
     Active Substance: FLUCONAZOLE
  28. SODIUM CHLORIDE [Concomitant]
     Active Substance: SODIUM CHLORIDE
  29. PFIZER-BIONTECH COVID-19 VACCINE [Concomitant]
     Active Substance: TOZINAMERAN
  30. DIPHENHYDRAMINE HYDROCHLORIDE [Concomitant]
     Active Substance: DIPHENHYDRAMINE HYDROCHLORIDE
  31. SHINGRIX [Concomitant]
     Active Substance: RECOMBINANT VARICELLA ZOSTER VIRUS (VZV) GLYCOPROTEIN E
  32. EZETIMIBE [Concomitant]
     Active Substance: EZETIMIBE
  33. SIMVASTATIN [Concomitant]
     Active Substance: SIMVASTATIN
  34. FLUBLOK [Concomitant]
     Active Substance: INFLUENZA A VIRUS A/CALIFORNIA/7/2009 (H1N1) RECOMBINANT HEMAGGLUTININ ANTIGEN\INFLUENZA A VIRUS A/V
  35. Trivalent influenza vaccine [Concomitant]
  36. ALBUTEROL SULFATE [Concomitant]
     Active Substance: ALBUTEROL SULFATE
  37. NITROFURANTOIN [Concomitant]
     Active Substance: NITROFURANTOIN
  38. LEVOFLOXACIN [Concomitant]
     Active Substance: LEVOFLOXACIN

REACTIONS (19)
  - Pneumothorax [Unknown]
  - Interstitial lung disease [Unknown]
  - Fall [Unknown]
  - Upper limb fracture [Unknown]
  - Hiatus hernia [Unknown]
  - Respiratory tract infection [Unknown]
  - COVID-19 [Unknown]
  - Fungal pharyngitis [Unknown]
  - Inguinal hernia [Unknown]
  - Fractured coccyx [Unknown]
  - Nasopharyngitis [Unknown]
  - Palpitations [Unknown]
  - Chest pain [Unknown]
  - Dyspnoea [Unknown]
  - Infusion site pain [Unknown]
  - Chest discomfort [Unknown]
  - Cough [Not Recovered/Not Resolved]
  - Infusion site bruising [Unknown]
  - Headache [Unknown]

NARRATIVE: CASE EVENT DATE: 20240530
